FAERS Safety Report 18095105 (Version 1)
Quarter: 2020Q3

REPORT INFORMATION
  Report Type: Spontaneous
  Country: GB (occurrence: GB)
  Receive Date: 20200730
  Receipt Date: 20200730
  Transmission Date: 20201103
  Serious: Yes (Other)
  Sender: FDA-Public Use
  Company Number: GB-JNJFOC-20200734423

PATIENT
  Sex: Female

DRUGS (3)
  1. REZOLSTA [Suspect]
     Active Substance: COBICISTAT\DARUNAVIR ETHANOLATE
     Indication: PRODUCT USED FOR UNKNOWN INDICATION
     Dosage: 800/150 MG
     Route: 048
  2. EMTRICITABINE W/TENOFOVIR [Concomitant]
     Active Substance: EMTRICITABINE\TENOFOVIR DISOPROXIL
     Dosage: 200/245
     Route: 065
  3. ISENTRESS [Concomitant]
     Active Substance: RALTEGRAVIR POTASSIUM
     Dosage: DOSE? 600
     Route: 065

REACTIONS (1)
  - COVID-19 [Unknown]

NARRATIVE: CASE EVENT DATE: 202004
